FAERS Safety Report 7460182-4 (Version None)
Quarter: 2011Q2

REPORT INFORMATION
  Report Type: 
  Country: None (occurrence: None)
  Receive Date: 20110505
  Receipt Date: 20110502
  Transmission Date: 20111010
  Serious: Yes (Other)
  Sender: FDA-Public Use
  Company Number: DE-ROCHE-769534

PATIENT
  Sex: Female
  Weight: 79 kg

DRUGS (6)
  1. SPIRONOLACTONE [Concomitant]
  2. PEGINTERFERON ALFA-2A [Suspect]
     Route: 058
     Dates: start: 20080214
  3. LACTULOSE [Concomitant]
  4. RIBAVIRIN [Suspect]
     Route: 065
  5. TORSEMIDE [Concomitant]
  6. OMEPRAZOL [Concomitant]

REACTIONS (1)
  - BLOOD UREA INCREASED [None]
